FAERS Safety Report 19050783 (Version 1)
Quarter: 2021Q1

REPORT INFORMATION
  Report Type: Spontaneous
  Country: US (occurrence: US)
  Receive Date: 20210323
  Receipt Date: 20210323
  Transmission Date: 20210420
  Serious: No
  Sender: FDA-Public Use
  Company Number: US-SUNOVION-2021SUN001006

PATIENT
  Sex: Female

DRUGS (1)
  1. LATUDA [Suspect]
     Active Substance: LURASIDONE HYDROCHLORIDE
     Dosage: (MATERNAL DOSE)20 MG
     Route: 064

REACTIONS (4)
  - Decreased eye contact [Recovered/Resolved]
  - Irritability [Recovered/Resolved]
  - Exposure via breast milk [Unknown]
  - Tremor [Recovered/Resolved]
